FAERS Safety Report 7866638-4 (Version None)
Quarter: 2011Q4

REPORT INFORMATION
  Report Type: 
  Country: None (occurrence: None)
  Receive Date: 20111028
  Receipt Date: 20110719
  Transmission Date: 20120403
  Serious: No
  Sender: FDA-Public Use
  Company Number: US-GLAXOSMITHKLINE-A0937327A

PATIENT
  Age: 70 Year
  Sex: Male

DRUGS (4)
  1. METOPROLOL TARTRATE [Concomitant]
  2. ZETIA [Concomitant]
  3. ADVAIR DISKUS 100/50 [Suspect]
     Indication: ASTHMA
     Dosage: 1PUFF TWICE PER DAY
     Route: 055
     Dates: start: 20110519
  4. SPIRIVA [Concomitant]

REACTIONS (2)
  - DRY MOUTH [None]
  - DRY THROAT [None]
